FAERS Safety Report 12390736 (Version 1)
Quarter: 2016Q2

REPORT INFORMATION
  Report Type: Spontaneous
  Country: US (occurrence: US)
  Receive Date: 20160520
  Receipt Date: 20160520
  Transmission Date: 20160815
  Serious: Yes (Hospitalization, Disabling, Congenital Anomaly, Other)
  Sender: FDA-Public Use
  Company Number: US-ABBVIE-10P-163-0666397-00

PATIENT
  Sex: Female

DRUGS (1)
  1. DEPAKOTE [Suspect]
     Active Substance: DIVALPROEX SODIUM
     Indication: MATERNAL EXPOSURE TIMING UNSPECIFIED
     Route: 064

REACTIONS (13)
  - Developmental delay [Unknown]
  - Bladder disorder [Unknown]
  - Neurogenic bowel [Unknown]
  - Mobility decreased [Unknown]
  - Hydrocephalus [Unknown]
  - Talipes [Unknown]
  - Foetal exposure during pregnancy [Unknown]
  - Neurogenic bladder [Unknown]
  - Neural tube defect [Unknown]
  - Spina bifida [Not Recovered/Not Resolved]
  - Meningomyelocele [Unknown]
  - Disability [Unknown]
  - Hospitalisation [Unknown]
